FAERS Safety Report 5793759-2 (Version None)
Quarter: 2008Q2

REPORT INFORMATION
  Report Type: 
  Country: None (occurrence: None)
  Receive Date: 20080627
  Receipt Date: 20080619
  Transmission Date: 20081010
  Serious: Yes (Other)
  Sender: FDA-Public Use
  Company Number: US-PFIZER INC-2008051920

PATIENT
  Sex: Male
  Weight: 80.7 kg

DRUGS (8)
  1. LIPITOR [Suspect]
     Indication: BLOOD CHOLESTEROL INCREASED
     Dosage: TEXT:20MG 4 DAYS A WEEK/10MG 3 DAYS A WEEK
  2. BENICAR [Concomitant]
  3. NASACORT [Concomitant]
  4. CIALIS [Concomitant]
  5. VITAMIN E [Concomitant]
  6. ASCORBIC ACID [Concomitant]
  7. CALCIUM [Concomitant]
  8. ALL OTHER THERAPEUTIC PRODUCTS [Concomitant]

REACTIONS (7)
  - BLOOD CREATINE PHOSPHOKINASE INCREASED [None]
  - CHEST DISCOMFORT [None]
  - CORONARY ARTERY DISEASE [None]
  - GLUCOSE TOLERANCE IMPAIRED [None]
  - LIPIDS INCREASED [None]
  - MUSCLE SPASMS [None]
  - MYALGIA [None]
